FAERS Safety Report 10210426 (Version 1)
Quarter: 2014Q2

REPORT INFORMATION
  Report Type: Report from Study
  Country: IN (occurrence: IN)
  Receive Date: 20140602
  Receipt Date: 20140602
  Transmission Date: 20141212
  Serious: Yes (Death)
  Sender: FDA-Public Use
  Company Number: IN-INCYTE CORPORATION-2014IN001446

PATIENT
  Sex: Male

DRUGS (1)
  1. JAKAVI [Suspect]
     Dosage: UNK UNK, QD
     Route: 048

REACTIONS (2)
  - Death [Fatal]
  - No therapeutic response [Unknown]
